FAERS Safety Report 6257907-2 (Version None)
Quarter: 2009Q3

REPORT INFORMATION
  Report Type: 
  Country: None (occurrence: None)
  Receive Date: 20090707
  Receipt Date: 20090624
  Transmission Date: 20100115
  Serious: Yes (Other)
  Sender: FDA-Public Use
  Company Number: US-PFIZER INC-2009233243

PATIENT
  Sex: Female
  Weight: 45.351 kg

DRUGS (1)
  1. DILANTIN-125 [Suspect]
     Indication: PAIN
     Dates: start: 20090501

REACTIONS (1)
  - GASTROINTESTINAL HYPOMOTILITY [None]
